FAERS Safety Report 7399275-9 (Version None)
Quarter: 2011Q2

REPORT INFORMATION
  Report Type: 
  Country: None (occurrence: None)
  Receive Date: 20110407
  Receipt Date: 20110331
  Transmission Date: 20111010
  Serious: No
  Sender: FDA-Public Use
  Company Number: US-PFIZER INC-2011072716

PATIENT
  Age: 50 Year
  Sex: Female

DRUGS (3)
  1. PREMARIN [Suspect]
     Indication: VAGINAL DISORDER
     Dosage: 0.5 G, 2X/WEEK
     Dates: start: 20110324
  2. PREMARIN [Suspect]
     Indication: URINARY TRACT INFECTION
  3. PREMARIN [Suspect]
     Indication: DYSPAREUNIA

REACTIONS (3)
  - MENORRHAGIA [None]
  - BREAST TENDERNESS [None]
  - ABDOMINAL DISTENSION [None]
